FAERS Safety Report 5571212-9 (Version None)
Quarter: 2007Q4

REPORT INFORMATION
  Report Type: 
  Country: None (occurrence: None)
  Receive Date: 20071221
  Receipt Date: 20070213
  Transmission Date: 20080405
  Serious: No
  Sender: FDA-Public Use
  Company Number: A0639524A

PATIENT
  Age: 60 Year
  Sex: Female

DRUGS (3)
  1. FLONASE [Suspect]
     Dosage: 2SPR TWICE PER DAY
     Route: 045
  2. VITAMINS [Concomitant]
  3. SUDAFED 12 HOUR [Concomitant]

REACTIONS (3)
  - AGEUSIA [None]
  - EPISTAXIS [None]
  - HEADACHE [None]
